FAERS Safety Report 5286385-5 (Version None)
Quarter: 2007Q2

REPORT INFORMATION
  Report Type: 
  Country: None (occurrence: None)
  Receive Date: 20070404
  Receipt Date: 20070403
  Transmission Date: 20071010
  Serious: Yes (Hospitalization)
  Sender: FDA-Public Use
  Company Number: AU-BRISTOL-MYERS SQUIBB COMPANY-13737192

PATIENT
  Age: 50 Year
  Sex: Male

DRUGS (4)
  1. CISPLATIN [Suspect]
     Indication: GASTRIC CANCER
     Route: 041
  2. FLUOROURACIL [Suspect]
     Indication: GASTRIC CANCER
     Route: 041
  3. PANADOL [Concomitant]
     Indication: PAIN
     Route: 048
  4. TRITACE [Concomitant]
     Indication: HYPERTENSION
     Route: 048
     Dates: start: 20060801

REACTIONS (2)
  - DEHYDRATION [None]
  - SYNCOPE [None]
